FAERS Safety Report 18466659 (Version 1)
Quarter: 2020Q4

REPORT INFORMATION
  Report Type: Spontaneous
  Country: US (occurrence: US)
  Receive Date: 20201105
  Receipt Date: 20201105
  Transmission Date: 20210114
  Serious: No
  Sender: FDA-Public Use
  Company Number: US-SA-2020SA309197

PATIENT

DRUGS (9)
  1. ALBUTEROL [SALBUTAMOL] [Concomitant]
     Active Substance: ALBUTEROL
  2. OCREVUS [Concomitant]
     Active Substance: OCRELIZUMAB
  3. ATENOLOL. [Concomitant]
     Active Substance: ATENOLOL
  4. GABAPENTIN. [Concomitant]
     Active Substance: GABAPENTIN
  5. SYMBICORT [Concomitant]
     Active Substance: BUDESONIDE\FORMOTEROL FUMARATE DIHYDRATE
  6. BACLOFEN. [Concomitant]
     Active Substance: BACLOFEN
  7. DICLOFENAC [Concomitant]
     Active Substance: DICLOFENAC
  8. AUBAGIO [Suspect]
     Active Substance: TERIFLUNOMIDE
     Indication: MULTIPLE SCLEROSIS
     Route: 065
  9. LEXAPRO [Concomitant]
     Active Substance: ESCITALOPRAM OXALATE

REACTIONS (1)
  - Influenza [Unknown]
